FAERS Safety Report 20695178 (Version 1)
Quarter: 2022Q2

REPORT INFORMATION
  Report Type: Spontaneous
  Country: US (occurrence: US)
  Receive Date: 20220411
  Receipt Date: 20220411
  Transmission Date: 20220721
  Serious: No
  Sender: FDA-Public Use
  Company Number: US-SANOFI-01051679

PATIENT
  Age: 37 Year
  Sex: Male

DRUGS (1)
  1. CERDELGA [Suspect]
     Active Substance: ELIGLUSTAT
     Indication: Hereditary disorder
     Dosage: 84 MG, BID
     Dates: start: 2010

REACTIONS (6)
  - Nasopharyngitis [Unknown]
  - Sinusitis [Unknown]
  - Upper-airway cough syndrome [Unknown]
  - Respiratory disorder [Unknown]
  - Condition aggravated [Unknown]
  - Cough [Unknown]
